FAERS Safety Report 6828989-1 (Version None)
Quarter: 2010Q3

REPORT INFORMATION
  Report Type: 
  Country: None (occurrence: None)
  Receive Date: 20100709
  Receipt Date: 20070226
  Transmission Date: 20110219
  Serious: No
  Sender: FDA-Public Use
  Company Number: US-PFIZER INC-2007015612

PATIENT
  Sex: Female
  Weight: 72.6 kg

DRUGS (9)
  1. CHANTIX [Suspect]
     Indication: SMOKING CESSATION THERAPY
     Dates: start: 20070206
  2. AVALIDE [Concomitant]
  3. CALCIUM CARBONATE [Concomitant]
  4. VITAMIN B COMPLEX WITH C [Concomitant]
  5. NEURONTIN [Concomitant]
  6. LIPITOR [Concomitant]
  7. DICLOFENAC SODIUM [Concomitant]
  8. METHOTREXATE [Concomitant]
  9. TAPAZOLE [Concomitant]

REACTIONS (1)
  - NAUSEA [None]
